FAERS Safety Report 12402022 (Version 2)
Quarter: 2016Q2

REPORT INFORMATION
  Report Type: Spontaneous
  Country: US (occurrence: US)
  Receive Date: 20160525
  Receipt Date: 20160527
  Transmission Date: 20160815
  Serious: No
  Sender: FDA-Public Use
  Company Number: US-SA-2015SA218816

PATIENT
  Age: 82 Year
  Sex: Male
  Weight: 94 kg

DRUGS (3)
  1. SOLOSTAR [Concomitant]
     Active Substance: DEVICE
     Dates: start: 2010, end: 2010
  2. JANUVIA [Concomitant]
     Active Substance: SITAGLIPTIN PHOSPHATE
  3. LANTUS SOLOSTAR [Suspect]
     Active Substance: INSULIN GLARGINE
     Indication: TYPE 2 DIABETES MELLITUS
     Dosage: LESS THAN 10 UNITS
     Route: 065
     Dates: start: 2010, end: 2010

REACTIONS (4)
  - Rash pruritic [Recovered/Resolved]
  - Hypersensitivity [Recovered/Resolved]
  - Insomnia [Unknown]
  - Rash maculo-papular [Recovered/Resolved]
